FAERS Safety Report 8791317 (Version 2)
Quarter: 2012Q4

REPORT INFORMATION
  Report Type: Spontaneous
  Country: US (occurrence: None)
  Receive Date: 20120911
  Receipt Date: 20121218
  Transmission Date: 20130627
  Serious: Yes (Death)
  Sender: FDA-Public Use
  Company Number: 2012-0779

PATIENT
  Age: 60 Year
  Sex: Female
  Weight: 72.12 kg

DRUGS (5)
  1. KYPROLIS [Suspect]
     Indication: MULTIPLE MYELOMA
     Dates: start: 2012, end: 20120814
  2. COMBIVENT (IPRATROPIUM BROMIDE) (IPRATROPIUM BROMIDE) [Concomitant]
  3. TRANSDERM SCOP (HYOSCINE) (HYOSCINE) [Concomitant]
  4. MANNITOL (MANNITOL) (MANNITOL) [Concomitant]
  5. FENTANYL (FENTANYL) (FENTANYL) [Concomitant]

REACTIONS (11)
  - Disease progression [None]
  - Drug resistance [None]
  - Epistaxis [None]
  - Loss of consciousness [None]
  - Head injury [None]
  - Loss of consciousness [None]
  - Oxygen saturation decreased [None]
  - Subdural haematoma [None]
  - Haemorrhage intracranial [None]
  - Pupil fixed [None]
  - Brain herniation [None]
